FAERS Safety Report 8797097 (Version 2)
Quarter: 2012Q4

REPORT INFORMATION
  Report Type: 
  Country: JP (occurrence: JP)
  Receive Date: 20120919
  Receipt Date: 20121126
  Transmission Date: 20130627
  Serious: Yes (Hospitalization)
  Sender: FDA-Public Use
  Company Number: JP-GLAXOSMITHKLINE-B0830568A

PATIENT
  Age: 16 Year
  Sex: Male

DRUGS (2)
  1. DERMOVATE [Suspect]
     Indication: PRODUCT USED FOR UNKNOWN INDICATION
     Route: 061
  2. BETAMETHASONE [Concomitant]
     Route: 031

REACTIONS (1)
  - Glaucoma [Recovered/Resolved]
